FAERS Safety Report 4409456-1 (Version None)
Quarter: 2004Q3

REPORT INFORMATION
  Report Type: 
  Country: None (occurrence: None)
  Receive Date: 20040722
  Receipt Date: 20040712
  Transmission Date: 20050211
  Serious: Yes (Hospitalization, Other)
  Sender: FDA-Public Use
  Company Number: HQWYE030813JUL04

PATIENT
  Age: 14 Month
  Sex: Female
  Weight: 13.9 kg

DRUGS (4)
  1. RAPAMUNE [Suspect]
     Indication: IMMUNOSUPPRESSANT DRUG THERAPY
     Dosage: 1.8 MG 2X PER 1 DAY, INTRAGASTRIC
     Dates: start: 20040518
  2. PROGRAF [Concomitant]
  3. GANCICLOVIR [Concomitant]
  4. METHYLPREDNISOLONE [Concomitant]

REACTIONS (3)
  - ILEUS PARALYTIC [None]
  - IMMUNOSUPPRESSION [None]
  - PNEUMONIA STREPTOCOCCAL [None]
